FAERS Safety Report 12427449 (Version 3)
Quarter: 2016Q3

REPORT INFORMATION
  Report Type: Report from Study
  Country: JP (occurrence: JP)
  Receive Date: 20160602
  Receipt Date: 20160803
  Transmission Date: 20161109
  Serious: Yes (Hospitalization, Disabling, Other)
  Sender: FDA-Public Use
  Company Number: JP-AMGEN-JPNCT2016070358

PATIENT
  Age: 79 Year
  Sex: Male
  Weight: 54 kg

DRUGS (11)
  1. DARBEPOETIN ALFA [Suspect]
     Active Substance: DARBEPOETIN ALFA
     Dosage: 30 MUG, QD
     Route: 058
     Dates: start: 20151209
  2. PYRIDOXAL [Suspect]
     Active Substance: PYRIDOXAL
     Indication: VITAMIN B6 DEFICIENCY
     Dosage: 20 MG, TID
     Route: 048
     Dates: start: 20160122
  3. DARBEPOETIN ALFA [Suspect]
     Active Substance: DARBEPOETIN ALFA
     Dosage: 30 MUG, QD
     Route: 058
     Dates: start: 20151113
  4. DARBEPOETIN ALFA [Suspect]
     Active Substance: DARBEPOETIN ALFA
     Dosage: 30 MUG, Q2WK
     Route: 065
  5. NU-LOTAN [Suspect]
     Active Substance: LOSARTAN POTASSIUM
     Indication: HYPERTENSION
     Dosage: 12.5 MG, QD
     Route: 048
     Dates: start: 20110823
  6. ATELEC [Suspect]
     Active Substance: CILNIDIPINE
     Indication: HYPERTENSION
     Dosage: 10 MG, QD
     Route: 048
     Dates: start: 20160401
  7. ARGAMATE [Concomitant]
     Active Substance: CALCIUM POLYSTYRENE SULFONATE
     Indication: HYPERKALAEMIA
     Dosage: 25 G, TID
     Route: 048
     Dates: start: 20131005
  8. MUCOSOLVAN L [Suspect]
     Active Substance: AMBROXOL HYDROCHLORIDE
     Indication: BRONCHITIS CHRONIC
     Dosage: 45 MG, QD
     Route: 048
     Dates: start: 20151225
  9. JUSO [Concomitant]
     Active Substance: SODIUM BICARBONATE
     Indication: ACIDOSIS
     Dosage: 0.8 G, TID
     Route: 048
     Dates: start: 20150807
  10. DARBEPOETIN ALFA [Suspect]
     Active Substance: DARBEPOETIN ALFA
     Indication: PRODUCT USED FOR UNKNOWN INDICATION
     Dosage: 30 MUG, Q2WK
     Route: 058
     Dates: start: 20150904
  11. MAGLAX [Suspect]
     Active Substance: MAGNESIUM OXIDE
     Indication: CONSTIPATION
     Dosage: 1000 MG, AS NECESSARY
     Route: 048
     Dates: start: 20160401

REACTIONS (5)
  - Hyperkalaemia [Recovering/Resolving]
  - Latent tuberculosis [Not Recovered/Not Resolved]
  - Hepatic function abnormal [Not Recovered/Not Resolved]
  - Oesophageal carcinoma [Not Recovered/Not Resolved]
  - Haemodialysis [Recovered/Resolved with Sequelae]

NARRATIVE: CASE EVENT DATE: 20151204
